FAERS Safety Report 4319273-9 (Version None)
Quarter: 2004Q1

REPORT INFORMATION
  Report Type: 
  Country: None (occurrence: None)
  Receive Date: 20040316
  Receipt Date: 20040225
  Transmission Date: 20041129
  Serious: Yes (Life-Threatening, Hospitalization)
  Sender: FDA-Public Use
  Company Number: 20040200183

PATIENT
  Age: 9 Month
  Sex: Male

DRUGS (4)
  1. ISOFLURANE [Suspect]
     Indication: MAINTENANCE OF ANAESTHESIA
  2. THIOPENTONE [Concomitant]
  3. NITROUS OXIDE [Concomitant]
  4. OXYGEN [Concomitant]

REACTIONS (5)
  - BLOOD PRESSURE DECREASED [None]
  - HEART BLOCK CONGENITAL [None]
  - HEART RATE DECREASED [None]
  - VENTRICULAR EXTRASYSTOLES [None]
  - VENTRICULAR TACHYCARDIA [None]
